FAERS Safety Report 6837122-1 (Version None)
Quarter: 2010Q3

REPORT INFORMATION
  Report Type: 
  Country: None (occurrence: None)
  Receive Date: 20100713
  Receipt Date: 20070621
  Transmission Date: 20110219
  Serious: Yes (Other)
  Sender: FDA-Public Use
  Company Number: US-PFIZER INC-2007036898

PATIENT
  Sex: Male
  Weight: 84.1 kg

DRUGS (2)
  1. CHANTIX [Suspect]
     Indication: EX-TOBACCO USER
     Dates: start: 20070401, end: 20070429
  2. ATENOLOL [Concomitant]
     Indication: HYPERTENSION

REACTIONS (5)
  - ABNORMAL DREAMS [None]
  - BLOOD PRESSURE INCREASED [None]
  - ERYTHEMA [None]
  - PRURITUS [None]
  - URTICARIA [None]
